FAERS Safety Report 6965644-1 (Version None)
Quarter: 2010Q3

REPORT INFORMATION
  Report Type: 
  Country: None (occurrence: None)
  Receive Date: 20100903
  Receipt Date: 20100803
  Transmission Date: 20110219
  Serious: No
  Sender: FDA-Public Use
  Company Number: US-BAYER-201019277BCC

PATIENT
  Age: 69 Year
  Sex: Female
  Weight: 65 kg

DRUGS (5)
  1. ALEVE [Suspect]
     Indication: BACK PAIN
     Dosage: TOTAL DAILY DOSE: 220 MG  UNIT DOSE: 220 MG
     Route: 048
     Dates: start: 20100728
  2. ASPIRIN [Suspect]
     Indication: ISCHAEMIC HEART DISEASE PROPHYLAXIS
     Dosage: TOTAL DAILY DOSE: 81 MG  UNIT DOSE: 81 MG
     Route: 048
     Dates: start: 20100801
  3. MAGNESIUM OX [Concomitant]
     Route: 065
  4. VITAMIN D [Concomitant]
     Route: 065
  5. CENTRUM SILVER [Concomitant]
     Route: 065

REACTIONS (4)
  - BACK PAIN [None]
  - DYSPEPSIA [None]
  - MYALGIA [None]
  - PAIN IN EXTREMITY [None]
